FAERS Safety Report 24071439 (Version 1)
Quarter: 2024Q3

REPORT INFORMATION
  Report Type: Report from Study
  Country: DE (occurrence: DE)
  Receive Date: 20240710
  Receipt Date: 20240710
  Transmission Date: 20241017
  Serious: No
  Sender: ROCHE
  Company Number: DE-ROCHE-3275193

PATIENT
  Age: 54 Year
  Sex: Female
  Weight: 60.0 kg

DRUGS (8)
  1. EVRYSDI [Suspect]
     Active Substance: RISDIPLAM
     Indication: Spinal muscular atrophy
     Dosage: ON 11/MAY/2023, 13/JAN/2023, 14/FEB/2024 LAST DOSE OF RISIDPLAM
     Route: 048
     Dates: start: 20210810
  2. BISOPROLOL [Concomitant]
     Active Substance: BISOPROLOL\BISOPROLOL FUMARATE
     Dates: start: 20190101
  3. CANDESARTAN [Concomitant]
     Active Substance: CANDESARTAN
     Dates: start: 20190101
  4. TROSPIUM [Concomitant]
     Active Substance: TROSPIUM
     Dates: start: 202108
  5. TROSPIUM [Concomitant]
     Active Substance: TROSPIUM
     Dates: start: 20190101
  6. LERCANIDIPINE [Concomitant]
     Active Substance: LERCANIDIPINE
     Dates: start: 202301
  7. LERCANIDIPINE [Concomitant]
     Active Substance: LERCANIDIPINE
     Dates: start: 20190101
  8. CITALOPRAM [Concomitant]
     Active Substance: CITALOPRAM\CITALOPRAM HYDROBROMIDE
     Dates: start: 20230701

REACTIONS (6)
  - Constipation [Not Recovered/Not Resolved]
  - Seborrhoeic dermatitis [Not Recovered/Not Resolved]
  - Visual impairment [Recovered/Resolved]
  - Skin irritation [Not Recovered/Not Resolved]
  - Dry skin [Recovered/Resolved]
  - Trismus [Recovered/Resolved]

NARRATIVE: CASE EVENT DATE: 20220916
